FAERS Safety Report 7315410-2 (Version None)
Quarter: 2011Q1

REPORT INFORMATION
  Report Type: 
  Country: None (occurrence: None)
  Receive Date: 20110225
  Receipt Date: 20110217
  Transmission Date: 20110831
  Serious: Yes (Hospitalization)
  Sender: FDA-Public Use
  Company Number: A0915128A

PATIENT
  Age: 70 Year
  Sex: Female

DRUGS (3)
  1. VELCADE [Suspect]
     Dosage: 2.3MG TWO TIMES PER WEEK
     Route: 042
     Dates: start: 20101018, end: 20101028
  2. MELPHALAN [Suspect]
     Dosage: 6MG CYCLIC
     Route: 048
     Dates: start: 20101019, end: 20101022
  3. PREDNISONE [Suspect]
     Dosage: 100MG CYCLIC
     Route: 048
     Dates: start: 20101018, end: 20101021

REACTIONS (6)
  - LETHARGY [None]
  - HAEMORRHOIDAL HAEMORRHAGE [None]
  - HYPOTENSION [None]
  - GASTROINTESTINAL HAEMORRHAGE [None]
  - RECTAL HAEMORRHAGE [None]
  - FATIGUE [None]
